FAERS Safety Report 6307880-3 (Version None)
Quarter: 2009Q3

REPORT INFORMATION
  Report Type: 
  Country: None (occurrence: None)
  Receive Date: 20090812
  Receipt Date: 20090812
  Transmission Date: 20100115
  Serious: No
  Sender: FDA-Public Use
  Company Number: None

PATIENT
  Age: 42 Year
  Sex: Female
  Weight: 65.7716 kg

DRUGS (2)
  1. CLONAZEPAM [Suspect]
     Indication: ANXIETY
     Dosage: 1 ONCE DAILY PO
     Route: 048
     Dates: start: 20090711, end: 20090716
  2. LEXAPRO [Suspect]
     Indication: DEPRESSION
     Dosage: 1 ONCE DAILY PO
     Route: 048
     Dates: start: 20090711, end: 20090716

REACTIONS (3)
  - IMPRISONMENT [None]
  - SUICIDAL IDEATION [None]
  - VIOLENCE-RELATED SYMPTOM [None]
